FAERS Safety Report 19981290 (Version 2)
Quarter: 2021Q4

REPORT INFORMATION
  Report Type: Spontaneous
  Country: NL (occurrence: NL)
  Receive Date: 20211021
  Receipt Date: 20211201
  Transmission Date: 20220303
  Serious: Yes (Hospitalization, Other)
  Sender: FDA-Public Use
  Company Number: NL-SAMSUNG-SB-2021-24392

PATIENT
  Age: 59 Year
  Sex: Male

DRUGS (1)
  1. TRASTUZUMAB [Suspect]
     Active Substance: TRASTUZUMAB
     Indication: Breast cancer stage IV
     Dosage: UNKNOWN
     Route: 065

REACTIONS (3)
  - Acute respiratory failure [Recovering/Resolving]
  - Actinomycotic pulmonary infection [Unknown]
  - Lung disorder [Unknown]
